FAERS Safety Report 6872886-2 (Version None)
Quarter: 2010Q3

REPORT INFORMATION
  Report Type: 
  Country: None (occurrence: None)
  Receive Date: 20100721
  Receipt Date: 20100714
  Transmission Date: 20110219
  Serious: Yes (Hospitalization, Other)
  Sender: FDA-Public Use
  Company Number: RB-03670-2010

PATIENT
  Age: 55 Year
  Sex: Female

DRUGS (2)
  1. SUBOXONE [Suspect]
     Indication: DRUG DEPENDENCE
     Dosage: (12 MG SUBLINGUAL)
     Route: 060
     Dates: start: 20080101
  2. PREDNISONE [Suspect]
     Indication: DYSPNOEA
     Dates: start: 20100101, end: 20100501

REACTIONS (18)
  - ARTHRALGIA [None]
  - BACK PAIN [None]
  - CELLULITIS [None]
  - DIARRHOEA [None]
  - DYSPNOEA [None]
  - FEELING JITTERY [None]
  - GASTRIC DISORDER [None]
  - HAEMOPTYSIS [None]
  - JOINT DISLOCATION [None]
  - LIMB INJURY [None]
  - LOWER RESPIRATORY TRACT INFECTION [None]
  - MUSCULOSKELETAL PAIN [None]
  - OEDEMA PERIPHERAL [None]
  - PAIN IN EXTREMITY [None]
  - PNEUMONIA [None]
  - PRODUCT TASTE ABNORMAL [None]
  - PULMONARY FIBROSIS [None]
  - VOMITING [None]
